FAERS Safety Report 12244915 (Version 2)
Quarter: 2016Q2

REPORT INFORMATION
  Report Type: Spontaneous
  Country: JP (occurrence: JP)
  Receive Date: 20160407
  Receipt Date: 20160609
  Transmission Date: 20160815
  Serious: Yes (Life-Threatening)
  Sender: FDA-Public Use
  Company Number: JP-AMGEN-JPNSP2016043678

PATIENT
  Age: 64 Year
  Sex: Male
  Weight: 57 kg

DRUGS (13)
  1. FILGRASTIM RECOMBINANT [Concomitant]
     Indication: NEUTROPENIA
     Dosage: 75 MUG, UNK
     Route: 065
  2. CANDESARTAN [Concomitant]
     Active Substance: CANDESARTAN
     Dosage: UNK
     Route: 048
     Dates: start: 20150520, end: 20160323
  3. ANORO ELLIPTA [Concomitant]
     Active Substance: UMECLIDINIUM BROMIDE\VILANTEROL TRIFENATATE
     Dosage: UNK
     Route: 055
     Dates: start: 20151124
  4. NEXIUM [Concomitant]
     Active Substance: ESOMEPRAZOLE MAGNESIUM
     Dosage: UNK
     Route: 048
     Dates: start: 20151127
  5. AMLODIN [Concomitant]
     Active Substance: AMLODIPINE BESYLATE
     Dosage: UNK
     Route: 048
     Dates: start: 20150520, end: 20160323
  6. G-LASTA [Suspect]
     Active Substance: PEGFILGRASTIM
     Indication: COLONY STIMULATING FACTOR PROPHYLAXIS
     Dosage: 3.6 MG, UNK
     Route: 058
     Dates: start: 20160318, end: 20160318
  7. CALSED [Concomitant]
     Dosage: UNK
     Route: 040
     Dates: start: 20160209
  8. CISPLATIN. [Concomitant]
     Active Substance: CISPLATIN
     Indication: SMALL CELL LUNG CANCER
     Dosage: UNK
     Route: 041
     Dates: start: 20150512
  9. ETOPOSIDE. [Concomitant]
     Active Substance: ETOPOSIDE
     Indication: SMALL CELL LUNG CANCER
     Dosage: UNK
     Route: 041
     Dates: start: 20150512
  10. PREDNISOLONE. [Concomitant]
     Active Substance: PREDNISOLONE
     Indication: SMALL CELL LUNG CANCER
     Dosage: UNK
     Route: 048
     Dates: start: 20160308, end: 20160323
  11. CALSED [Concomitant]
     Indication: SMALL CELL LUNG CANCER
     Dosage: UNK
     Route: 040
     Dates: start: 20151119
  12. E KEPPRA [Concomitant]
     Active Substance: LEVETIRACETAM
     Dosage: UNK
     Route: 048
     Dates: start: 20160120
  13. CALSED [Concomitant]
     Dosage: 60 MG, UNK
     Route: 040
     Dates: start: 20160308, end: 20160310

REACTIONS (1)
  - Interstitial lung disease [Recovering/Resolving]

NARRATIVE: CASE EVENT DATE: 20160323
